FAERS Safety Report 6563564-8 (Version None)
Quarter: 2010Q1

REPORT INFORMATION
  Report Type: 
  Country: None (occurrence: None)
  Receive Date: 20100130
  Receipt Date: 20091221
  Transmission Date: 20100710
  Serious: No
  Sender: FDA-Public Use
  Company Number: US-ABBOTT-09P-163-0615930-00

PATIENT
  Sex: Male

DRUGS (7)
  1. HUMIRA [Suspect]
     Indication: JUVENILE ARTHRITIS
     Route: 058
     Dates: start: 20060101, end: 20090801
  2. HUMIRA [Suspect]
     Route: 058
     Dates: start: 20090801, end: 20091101
  3. HUMIRA [Suspect]
     Dates: start: 20091101
  4. NABUMETONE [Concomitant]
     Indication: MUSCLE RELAXANT THERAPY
     Route: 048
  5. FOCALIN XR [Concomitant]
     Indication: ATTENTION DEFICIT/HYPERACTIVITY DISORDER
     Dosage: IN THE AM
     Route: 048
  6. ALBUTEROL [Concomitant]
     Indication: ASTHMA EXERCISE INDUCED
     Route: 055
  7. CLARITIN [Concomitant]
     Indication: SEASONAL ALLERGY
     Route: 048

REACTIONS (3)
  - ARTHRALGIA [None]
  - INFLUENZA [None]
  - PHARYNGITIS STREPTOCOCCAL [None]
